FAERS Safety Report 5069330-7 (Version None)
Quarter: 2006Q3

REPORT INFORMATION
  Report Type: 
  Country: None (occurrence: None)
  Receive Date: 20060803
  Receipt Date: 20060531
  Transmission Date: 20061208
  Serious: Yes (Death, Hospitalization, Other)
  Sender: FDA-Public Use
  Company Number: US-BRISTOL-MYERS SQUIBB COMPANY-13395652

PATIENT
  Age: 64 Year
  Sex: Male

DRUGS (2)
  1. GLUCOPHAGE [Suspect]
     Indication: DIABETES MELLITUS
  2. PRAVACHOL [Suspect]
     Indication: BLOOD CHOLESTEROL INCREASED

REACTIONS (2)
  - ENCEPHALITIS HERPES [None]
  - PNEUMONIA [None]
